FAERS Safety Report 21944342 (Version 1)
Quarter: 2023Q1

REPORT INFORMATION
  Report Type: Spontaneous
  Country: US (occurrence: None)
  Receive Date: 20230201
  Receipt Date: 20230201
  Transmission Date: 20230418
  Serious: Yes (Hospitalization)
  Sender: FDA-Public Use
  Company Number: None

PATIENT
  Age: 75 Year
  Sex: Male

DRUGS (1)
  1. CAPECITABINE [Suspect]
     Active Substance: CAPECITABINE
     Dosage: 300 MG BID ORAL
     Route: 048
     Dates: start: 20221206, end: 20221219

REACTIONS (3)
  - Decreased appetite [None]
  - Dyspnoea [None]
  - Renal impairment [None]

NARRATIVE: CASE EVENT DATE: 20221224
